FAERS Safety Report 9530397 (Version 2)
Quarter: 2013Q4

REPORT INFORMATION
  Report Type: Report from Study
  Country: JP (occurrence: JP)
  Receive Date: 20130918
  Receipt Date: 20131105
  Transmission Date: 20140711
  Serious: Yes (Other)
  Sender: FDA-Public Use
  Company Number: JP-ROCHE-1273769

PATIENT
  Sex: Female
  Weight: 48 kg

DRUGS (20)
  1. PEG-INTERFERON ALFA 2A [Suspect]
     Indication: HEPATIC CIRRHOSIS
     Route: 058
     Dates: start: 20120306, end: 20120314
  2. PEG-INTERFERON ALFA 2A [Suspect]
     Indication: HEPATIC CIRRHOSIS
     Route: 058
     Dates: start: 20120321, end: 20120321
  3. PEG-INTERFERON ALFA 2A [Suspect]
     Indication: HEPATIC CIRRHOSIS
     Route: 058
     Dates: start: 20120328, end: 20120411
  4. PEG-INTERFERON ALFA 2A [Suspect]
     Indication: HEPATIC CIRRHOSIS
     Route: 058
     Dates: start: 20120418, end: 20120425
  5. PEG-INTERFERON ALFA 2A [Suspect]
     Indication: HEPATIC CIRRHOSIS
     Route: 058
     Dates: start: 20120502, end: 20120502
  6. PEG-INTERFERON ALFA 2A [Suspect]
     Indication: HEPATIC CIRRHOSIS
     Route: 058
     Dates: start: 20120509, end: 20120509
  7. PEG-INTERFERON ALFA 2A [Suspect]
     Indication: HEPATIC CIRRHOSIS
     Route: 058
     Dates: start: 20120516, end: 20120613
  8. PEG-INTERFERON ALFA 2A [Suspect]
     Indication: HEPATIC CIRRHOSIS
     Route: 058
     Dates: start: 20120620, end: 20120620
  9. PEG-INTERFERON ALFA 2A [Suspect]
     Indication: HEPATIC CIRRHOSIS
     Route: 058
     Dates: start: 20120627, end: 20120725
  10. PEG-INTERFERON ALFA 2A [Suspect]
     Indication: HEPATIC CIRRHOSIS
     Route: 058
     Dates: start: 20120801, end: 20121114
  11. PEG-INTERFERON ALFA 2A [Suspect]
     Indication: HEPATIC CIRRHOSIS
     Route: 058
     Dates: start: 20121121, end: 20121121
  12. PEG-INTERFERON ALFA 2A [Suspect]
     Indication: HEPATIC CIRRHOSIS
     Route: 058
     Dates: start: 20121128, end: 20121212
  13. PEG-INTERFERON ALFA 2A [Suspect]
     Indication: HEPATIC CIRRHOSIS
     Route: 058
     Dates: start: 20121219, end: 20121219
  14. PEG-INTERFERON ALFA 2A [Suspect]
     Indication: HEPATIC CIRRHOSIS
     Route: 058
     Dates: start: 20121226, end: 20130104
  15. PEG-INTERFERON ALFA 2A [Suspect]
     Indication: HEPATIC CIRRHOSIS
     Route: 058
     Dates: start: 20130109, end: 20130109
  16. PEG-INTERFERON ALFA 2A [Suspect]
     Indication: HEPATIC CIRRHOSIS
     Route: 058
     Dates: start: 20130116, end: 20130403
  17. PEG-INTERFERON ALFA 2A [Suspect]
     Indication: HEPATIC CIRRHOSIS
     Route: 058
     Dates: start: 20130410, end: 20130410
  18. PEG-INTERFERON ALFA 2A [Suspect]
     Indication: HEPATIC CIRRHOSIS
     Route: 058
     Dates: start: 20130417, end: 20130626
  19. RIBAVIRIN [Suspect]
     Indication: HEPATIC CIRRHOSIS
     Route: 048
     Dates: start: 20120306, end: 20130702
  20. ALLEGRA [Concomitant]
     Route: 048
     Dates: start: 20130206, end: 20130529

REACTIONS (3)
  - White blood cell count decreased [Unknown]
  - Haemoglobin decreased [Unknown]
  - Platelet count decreased [Unknown]
